FAERS Safety Report 12693993 (Version 1)
Quarter: 2016Q3

REPORT INFORMATION
  Report Type: Spontaneous
  Country: US (occurrence: US)
  Receive Date: 20160829
  Receipt Date: 20160829
  Transmission Date: 20161109
  Serious: No
  Sender: FDA-Public Use
  Company Number: US-PFIZER INC-2016402164

PATIENT
  Age: 26 Year
  Sex: Male
  Weight: 67 kg

DRUGS (1)
  1. ADVIL [Suspect]
     Active Substance: IBUPROFEN
     Indication: MALAISE
     Dosage: 2 DF, UNK
     Route: 048
     Dates: start: 20160809

REACTIONS (2)
  - Drug screen false positive [Unknown]
  - Product use issue [Unknown]

NARRATIVE: CASE EVENT DATE: 20160809
